FAERS Safety Report 14084243 (Version 1)
Quarter: 2017Q4

REPORT INFORMATION
  Report Type: Spontaneous
  Country: US (occurrence: US)
  Receive Date: 20171013
  Receipt Date: 20171013
  Transmission Date: 20180321
  Serious: Yes (Death)
  Sender: FDA-Public Use
  Company Number: US-TESARO INC.-TS50-00152-2016USA

PATIENT
  Age: 57 Year
  Sex: Female

DRUGS (2)
  1. ROLAPITANT HYDROCHLORIDE [Suspect]
     Active Substance: ROLAPITANT
     Indication: NAUSEA
  2. ROLAPITANT HYDROCHLORIDE [Suspect]
     Active Substance: ROLAPITANT
     Indication: VOMITING
     Route: 048

REACTIONS (2)
  - Vomiting [Unknown]
  - Breast cancer [Fatal]

NARRATIVE: CASE EVENT DATE: 20170921
